FAERS Safety Report 9552971 (Version 2)
Quarter: 2013Q4

REPORT INFORMATION
  Report Type: Report from Study
  Country: US (occurrence: US)
  Receive Date: 20130925
  Receipt Date: 20131025
  Transmission Date: 20140711
  Serious: Yes (Death)
  Sender: FDA-Public Use
  Company Number: US-ALEXION PHARMACEUTICALS INC.-A201302360

PATIENT
  Age: 63 Year
  Sex: Male
  Weight: 62.5 kg

DRUGS (2)
  1. SOLIRIS [Suspect]
     Indication: HAEMOLYTIC URAEMIC SYNDROME
     Dosage: 900 MG, SINGLE
     Route: 042
     Dates: start: 20130910, end: 20130910
  2. PROGRAF [Concomitant]
     Dosage: UNK

REACTIONS (2)
  - Multi-organ failure [Fatal]
  - Haemolytic uraemic syndrome [Fatal]
